FAERS Safety Report 9403593 (Version 3)
Quarter: 2013Q3

REPORT INFORMATION
  Report Type: Spontaneous
  Country: IT (occurrence: IT)
  Receive Date: 20130717
  Receipt Date: 20130910
  Transmission Date: 20140515
  Serious: Yes (Life-Threatening, Hospitalization, Other)
  Sender: FDA-Public Use
  Company Number: IT-MERCK-1307ITA005350

PATIENT
  Age: 64 Year
  Sex: Female
  Weight: 60 kg

DRUGS (9)
  1. MIRTAZAPINE [Suspect]
     Dosage: 600 MG, UNK
     Route: 048
     Dates: start: 20130613, end: 20130613
  2. ENALAPRIL MALEATE [Suspect]
     Dosage: TOTAL: 70 MG
     Route: 048
     Dates: start: 20130613, end: 20130613
  3. SEROQUEL [Suspect]
     Dosage: 60 DF, UNK
     Route: 048
     Dates: start: 20130613, end: 20130613
  4. ANSIOLIN [Suspect]
     Dosage: 20 DF, UNK
     Route: 048
     Dates: start: 20130613, end: 20130613
  5. EFEXOR [Suspect]
     Dosage: 47 DF, UNK
     Route: 048
     Dates: start: 20130613
  6. EFEXOR [Suspect]
     Dosage: 14 DF, UNK
     Route: 048
     Dates: start: 20130613
  7. NOZINAN [Suspect]
     Dosage: 10 DF, UNK
     Route: 048
     Dates: start: 20130613
  8. TOPAMAX [Suspect]
     Dosage: 60 DF, UNK
     Route: 048
     Dates: start: 20130613
  9. ELONTRIL [Suspect]
     Dosage: 30 DF, UNK
     Route: 048
     Dates: start: 20130613

REACTIONS (3)
  - Coma [Recovered/Resolved]
  - Hepatic enzyme increased [Recovered/Resolved]
  - Drug abuse [Unknown]
